FAERS Safety Report 5466894-6 (Version None)
Quarter: 2007Q3

REPORT INFORMATION
  Report Type: 
  Country: None (occurrence: None)
  Receive Date: 20070925
  Receipt Date: 20070914
  Transmission Date: 20080115
  Serious: Yes (Hospitalization)
  Sender: FDA-Public Use
  Company Number: US-AMGEN-KDL236774

PATIENT
  Sex: Female
  Weight: 99.4 kg

DRUGS (9)
  1. ENBREL [Suspect]
     Indication: PSORIATIC ARTHROPATHY
     Route: 058
     Dates: start: 20060825, end: 20070717
  2. ENBREL [Suspect]
     Indication: PSORIASIS
  3. LEXAPRO [Concomitant]
  4. TRAMADOL HCL [Concomitant]
     Dates: start: 20061001
  5. LISINOPRIL [Concomitant]
     Dates: start: 20070130
  6. PREDNISONE [Concomitant]
     Dates: start: 20070130
  7. CELEBREX [Concomitant]
     Dates: end: 20061201
  8. NYSTATIN [Concomitant]
     Route: 061
  9. OS-CAL + D [Concomitant]

REACTIONS (4)
  - CHILLS [None]
  - DERMATITIS ALLERGIC [None]
  - NAUSEA [None]
  - PSORIASIS [None]
